FAERS Safety Report 10179981 (Version 1)
Quarter: 2014Q2

REPORT INFORMATION
  Report Type: Spontaneous
  Country: US (occurrence: US)
  Receive Date: 20140519
  Receipt Date: 20140519
  Transmission Date: 20141212
  Serious: Yes (Hospitalization)
  Sender: FDA-Public Use
  Company Number: US-BRISTOL-MYERS SQUIBB COMPANY-19485556

PATIENT
  Age: 75 Year
  Sex: Female
  Weight: 85.71 kg

DRUGS (9)
  1. BARACLUDE [Suspect]
  2. ATENOLOL [Concomitant]
  3. FUROSEMIDE [Concomitant]
  4. LANSOPRAZOLE [Concomitant]
  5. LEVOTHYROXINE [Concomitant]
  6. NIFEDIPINE [Concomitant]
  7. NITROFURANTOIN [Concomitant]
  8. SPIRONOLACTONE [Concomitant]
  9. XALATAN [Concomitant]

REACTIONS (1)
  - Adverse event [Unknown]
